FAERS Safety Report 24749385 (Version 1)
Quarter: 2024Q4

REPORT INFORMATION
  Report Type: Spontaneous
  Country: US (occurrence: None)
  Receive Date: 20241218
  Receipt Date: 20241218
  Transmission Date: 20250114
  Serious: Yes (Life-Threatening, Other)
  Sender: Public
  Company Number: None

PATIENT
  Age: 61 Year
  Sex: Female
  Weight: 78.3 kg

DRUGS (5)
  1. DULOXETINE [Suspect]
     Active Substance: DULOXETINE
     Indication: Neuralgia
     Dosage: OTHER QUANTITY : 30 CAPSULE(S);?FREQUENCY : DAILY;?
     Route: 048
     Dates: end: 20241211
  2. METOPROLOL [Concomitant]
     Active Substance: METOPROLOL
  3. DULOXETINE [Concomitant]
     Active Substance: DULOXETINE
  4. PANTOPRAZOLE [Concomitant]
     Active Substance: PANTOPRAZOLE
  5. VITAMINS [Concomitant]
     Active Substance: VITAMINS

REACTIONS (4)
  - Chest pain [None]
  - Abdominal pain upper [None]
  - Hepatic enzyme increased [None]
  - Hepatic lesion [None]

NARRATIVE: CASE EVENT DATE: 20241129
